FAERS Safety Report 12633932 (Version 1)
Quarter: 2016Q3

REPORT INFORMATION
  Report Type: Spontaneous
  Country: IT (occurrence: IT)
  Receive Date: 20160809
  Receipt Date: 20160809
  Transmission Date: 20161109
  Serious: Yes (Hospitalization)
  Sender: FDA-Public Use
  Company Number: IT-ROCHE-1810249

PATIENT
  Age: 20 Year
  Sex: Male

DRUGS (4)
  1. OXALIPLATIN. [Suspect]
     Active Substance: OXALIPLATIN
     Dosage: CONCENTRATE FOR SOLUTION FOR INTRAVENOUS INFUSION?FREQUENCY: TOTAL
     Route: 042
     Dates: start: 20160629
  2. OXALIPLATIN. [Suspect]
     Active Substance: OXALIPLATIN
     Indication: HEPATOCELLULAR CARCINOMA
     Dosage: CONCENTRATE FOR SOLUTION FOR INTRAVENOUS INFUSION?FREQUENCY: TOTAL
     Route: 042
     Dates: start: 20160608
  3. AVASTIN [Suspect]
     Active Substance: BEVACIZUMAB
     Indication: HEPATOCELLULAR CARCINOMA
     Dosage: CONCENTRATE FOR SOLUTION FOR INTRAVENOUS INFUSION?FREQUENCY: TOTAL
     Route: 042
     Dates: start: 20160608
  4. AVASTIN [Suspect]
     Active Substance: BEVACIZUMAB
     Dosage: CONCENTRATE FOR SOLUTION FOR INTRAVENOUS INFUSION?FREQUENCY: TOTAL
     Route: 042
     Dates: start: 20160629

REACTIONS (7)
  - Diarrhoea [Recovered/Resolved with Sequelae]
  - Vomiting [Recovered/Resolved with Sequelae]
  - Vertigo [Recovered/Resolved with Sequelae]
  - Q fever [Recovered/Resolved with Sequelae]
  - Electrolyte imbalance [Recovered/Resolved]
  - Hypotension [Recovered/Resolved]
  - Tachycardia [Recovered/Resolved with Sequelae]

NARRATIVE: CASE EVENT DATE: 20160608
